FAERS Safety Report 6021802-4 (Version None)
Quarter: 2008Q4

REPORT INFORMATION
  Report Type: 
  Country: None (occurrence: None)
  Receive Date: 20081229
  Receipt Date: 20081219
  Transmission Date: 20090506
  Serious: Yes (Hospitalization, Disabling)
  Sender: FDA-Public Use
  Company Number: JP-AVENTIS-200813533JP

PATIENT
  Age: 79 Year
  Sex: Female
  Weight: 40 kg

DRUGS (9)
  1. AMARYL [Suspect]
     Indication: DIABETES MELLITUS
     Route: 048
     Dates: start: 20070411, end: 20080610
  2. GLYCORAN [Suspect]
     Indication: DIABETES MELLITUS
     Route: 048
     Dates: start: 20070704, end: 20080610
  3. BLOPRESS [Concomitant]
     Indication: HYPERTENSION
     Route: 048
     Dates: start: 20070704, end: 20080610
  4. ATELEC [Concomitant]
     Indication: HYPERTENSION
     Route: 048
     Dates: end: 20080610
  5. URSO                               /00465701/ [Concomitant]
     Indication: HEPATIC CIRRHOSIS
     Route: 048
     Dates: end: 20080610
  6. TRYPTANOL                          /00002202/ [Concomitant]
     Indication: DEPRESSION
     Route: 048
     Dates: end: 20080610
  7. SEPAZON [Concomitant]
     Indication: DEPRESSION
     Route: 048
     Dates: end: 20080610
  8. DEPAS [Concomitant]
     Indication: DEPRESSION
     Route: 048
     Dates: end: 20080610
  9. ACTOS [Concomitant]
     Indication: DIABETES MELLITUS
     Dates: start: 20060104, end: 20060510

REACTIONS (2)
  - DEPRESSED LEVEL OF CONSCIOUSNESS [None]
  - HYPOGLYCAEMIC ENCEPHALOPATHY [None]
